FAERS Safety Report 11788701 (Version 1)
Quarter: 2015Q4

REPORT INFORMATION
  Report Type: Spontaneous
  Country: NO (occurrence: NO)
  Receive Date: 20151201
  Receipt Date: 20151201
  Transmission Date: 20160305
  Serious: Yes (Other)
  Sender: FDA-Public Use
  Company Number: NO-ROCHE-1670053

PATIENT
  Age: 55 Year
  Sex: Male

DRUGS (1)
  1. VEMURAFENIB [Suspect]
     Active Substance: VEMURAFENIB
     Indication: SKIN CANCER
     Route: 065

REACTIONS (3)
  - Photophobia [Unknown]
  - Arthralgia [Unknown]
  - Sunburn [Unknown]
